FAERS Safety Report 19647638 (Version 5)
Quarter: 2021Q4

REPORT INFORMATION
  Report Type: Report from Study
  Country: CN (occurrence: CN)
  Receive Date: 20210802
  Receipt Date: 20211103
  Transmission Date: 20220303
  Serious: Yes (Hospitalization)
  Sender: FDA-Public Use
  Company Number: CN-PFIZER INC-202100944252

PATIENT
  Age: 59 Year
  Sex: Male
  Weight: 46 kg

DRUGS (15)
  1. PACLITAXEL [Suspect]
     Active Substance: PACLITAXEL
     Indication: Non-small cell lung cancer
     Dosage: 17 MG/M2, 1X/3 WEEKS
     Route: 042
     Dates: start: 20210706
  2. CARBOPLATIN [Suspect]
     Active Substance: CARBOPLATIN
     Indication: Non-small cell lung cancer
     Dosage: AUC5, 1X/3 WEEKS
     Route: 042
     Dates: start: 20210706
  3. INVESTIGATIONAL PRODUCT [Suspect]
     Active Substance: INVESTIGATIONAL PRODUCT
     Indication: Non-small cell lung cancer
     Dosage: BLIND
     Dates: start: 20210705
  4. PROMETHAZINE HYDROCHLORIDE [Concomitant]
     Active Substance: PROMETHAZINE HYDROCHLORIDE
     Indication: Prophylaxis
     Dosage: 25 MG ST
     Route: 030
     Dates: start: 20210705, end: 20210705
  5. PROMETHAZINE HYDROCHLORIDE [Concomitant]
     Active Substance: PROMETHAZINE HYDROCHLORIDE
     Dosage: 25 MG, ST
     Route: 030
     Dates: start: 20210706, end: 20210706
  6. ACETAMINOPHEN [Concomitant]
     Active Substance: ACETAMINOPHEN
     Indication: Prophylaxis
     Dosage: 500 MG, ST
     Route: 048
     Dates: start: 20210705, end: 20210705
  7. CIMETIDINE [Concomitant]
     Active Substance: CIMETIDINE
     Indication: Prophylaxis
     Dosage: 0.4 G, ST
     Route: 042
     Dates: start: 20210705, end: 20210705
  8. CIMETIDINE [Concomitant]
     Active Substance: CIMETIDINE
     Dosage: 0.3 G, ST
     Route: 042
     Dates: start: 20210706, end: 20210706
  9. PALONOSETRON HYDROCHLORIDE [Concomitant]
     Active Substance: PALONOSETRON HYDROCHLORIDE
     Indication: Prophylaxis of nausea and vomiting
     Dosage: 0.25 MG, ST
     Route: 042
     Dates: start: 20210705, end: 20210705
  10. BUCLADESINE CALCIUM [Concomitant]
     Active Substance: BUCLADESINE CALCIUM
     Indication: Nutritional supplementation
     Dosage: 40 MG, 1X/DAY (ADENOSINE PHOSPHATE )
     Route: 042
     Dates: start: 20210705, end: 20210708
  11. VITAMIN C [Concomitant]
     Active Substance: ASCORBIC ACID
     Indication: Nutritional supplementation
     Dosage: 3 G, 1X/DAY
     Route: 042
     Dates: start: 20210706, end: 20210709
  12. VITAMIN B6 [Concomitant]
     Active Substance: PYRIDOXINE HYDROCHLORIDE
     Indication: Nutritional supplementation
     Dosage: 0.2 G, 1X/DAY
     Route: 042
     Dates: start: 20210706, end: 20210709
  13. DEXAMETHASONE SODIUM PHOSPHATE [Concomitant]
     Active Substance: DEXAMETHASONE SODIUM PHOSPHATE
     Indication: Prophylaxis
     Dosage: 20 MG, ST
     Route: 042
     Dates: start: 20210706, end: 20210706
  14. APREPITANT [Concomitant]
     Active Substance: APREPITANT
     Indication: Prophylaxis of nausea and vomiting
     Dosage: 125 MG, ST
     Route: 048
     Dates: start: 20210706, end: 20210706
  15. APREPITANT [Concomitant]
     Active Substance: APREPITANT
     Dosage: 80 MG, ST
     Route: 048
     Dates: start: 20210707, end: 20210708

REACTIONS (3)
  - Aspartate aminotransferase increased [Recovered/Resolved]
  - Alanine aminotransferase increased [Recovered/Resolved]
  - Gamma-glutamyltransferase increased [Recovered/Resolved]

NARRATIVE: CASE EVENT DATE: 20210713
